FAERS Safety Report 10751112 (Version 1)
Quarter: 2015Q1

REPORT INFORMATION
  Report Type: Spontaneous
  Country: US (occurrence: None)
  Receive Date: 20150129
  Receipt Date: 20150129
  Transmission Date: 20150721
  Serious: Yes (Other)
  Sender: FDA-Public Use
  Company Number: None

PATIENT
  Age: 58 Year
  Sex: Female
  Weight: 117.94 kg

DRUGS (1)
  1. ALPRAZOLAM XR 0.5 [Suspect]
     Active Substance: ALPRAZOLAM
     Indication: GENERALISED ANXIETY DISORDER
     Route: 048
     Dates: start: 201201, end: 20150114

REACTIONS (7)
  - Agitation [None]
  - Disorientation [None]
  - Paranoia [None]
  - Delirium [None]
  - Product substitution issue [None]
  - Product quality issue [None]
  - Hallucination, auditory [None]

NARRATIVE: CASE EVENT DATE: 20150112
